FAERS Safety Report 8434776-3 (Version None)
Quarter: 2012Q2

REPORT INFORMATION
  Report Type: 
  Country: None (occurrence: None)
  Receive Date: 20120614
  Receipt Date: 20120608
  Transmission Date: 20120825
  Serious: Yes (Life-Threatening, Hospitalization)
  Sender: FDA-Public Use
  Company Number: FR-VERTEX PHARMACEUTICALS INC.-AE-2011-000206

PATIENT
  Sex: Male
  Weight: 75 kg

DRUGS (19)
  1. LASIX [Concomitant]
     Route: 048
     Dates: start: 20110502, end: 20110503
  2. FOLIC ACID [Concomitant]
     Dates: start: 20110504
  3. INSPRA [Concomitant]
     Indication: CARDIAC FAILURE
     Dates: start: 19960101
  4. PEGINTERFERON ALFA-2A [Concomitant]
     Indication: HEPATITIS C
     Route: 058
     Dates: start: 20110317, end: 20110505
  5. RAMIPRIL [Concomitant]
     Indication: CARDIAC FAILURE
     Dates: start: 19960101
  6. CALCIPARINE [Concomitant]
     Route: 048
     Dates: start: 20110502
  7. COUMADIN [Concomitant]
     Indication: CARDIAC FAILURE
     Dates: start: 20110505
  8. BISOPROLOL FUMARATE [Concomitant]
     Indication: CARDIAC FAILURE
     Dates: start: 19960101
  9. PRIMPERAN TAB [Concomitant]
     Dates: start: 20110429
  10. VX-950 [Suspect]
     Indication: HEPATITIS C
     Route: 048
     Dates: start: 20110317, end: 20110502
  11. RIBAVIRIN [Concomitant]
     Indication: HEPATITIS C
     Route: 048
     Dates: start: 20110317, end: 20110502
  12. NEORECORMON [Concomitant]
     Dates: start: 20110429
  13. QUESTRAN [Concomitant]
     Dates: start: 20110331, end: 20110529
  14. RIBAVIRIN [Concomitant]
     Route: 048
     Dates: start: 20110503, end: 20110513
  15. IMOVANE [Concomitant]
     Dates: start: 20110503, end: 20110506
  16. PROCTOLOG [Concomitant]
  17. VX-950 [Suspect]
     Route: 048
     Dates: start: 20110504, end: 20110509
  18. COUMADIN [Concomitant]
     Dates: start: 19960101
  19. BIAFINE [Concomitant]
     Dates: start: 20110331, end: 20110429

REACTIONS (4)
  - ANAEMIA [None]
  - INAPPROPRIATE SCHEDULE OF DRUG ADMINISTRATION [None]
  - PULMONARY SEPSIS [None]
  - PYREXIA [None]
